FAERS Safety Report 7790959-7 (Version None)
Quarter: 2011Q4

REPORT INFORMATION
  Report Type: 
  Country: None (occurrence: None)
  Receive Date: 20111002
  Receipt Date: 20110929
  Transmission Date: 20120403
  Serious: Yes (Death, Other)
  Sender: FDA-Public Use
  Company Number: PHHY2011PL86092

PATIENT
  Sex: Female

DRUGS (1)
  1. LETROZOLE [Suspect]
     Dates: start: 20070425, end: 20071003

REACTIONS (3)
  - NEOPLASM PROGRESSION [None]
  - NEOPLASM MALIGNANT [None]
  - DEATH [None]
